FAERS Safety Report 9832579 (Version 2)
Quarter: 2014Q1

REPORT INFORMATION
  Report Type: Spontaneous
  Country: US (occurrence: US)
  Receive Date: 20140121
  Receipt Date: 20140124
  Transmission Date: 20141002
  Serious: Yes (Other)
  Sender: FDA-Public Use
  Company Number: US-PFIZER INC-2014014178

PATIENT
  Sex: Female

DRUGS (2)
  1. XANAX [Suspect]
     Indication: DEPRESSION
     Dosage: UNK
  2. XANAX [Suspect]
     Indication: ANXIETY

REACTIONS (2)
  - Drug dependence [Unknown]
  - Malaise [Unknown]
